FAERS Safety Report 4499083-2 (Version None)
Quarter: 2004Q4

REPORT INFORMATION
  Report Type: 
  Country: None (occurrence: None)
  Receive Date: 20041111
  Receipt Date: 20041104
  Transmission Date: 20050328
  Serious: Yes (Hospitalization)
  Sender: FDA-Public Use
  Company Number: JP-JNJFOC-20041008024

PATIENT
  Age: 60 Year
  Sex: Female

DRUGS (8)
  1. RISPERDAL [Suspect]
     Route: 049
  2. RISPERDAL [Suspect]
     Indication: SCHIZOPHRENIA
     Route: 049
  3. CHLORPROMAZINE [Suspect]
     Dosage: 1 DOSE DAILY
  4. CHLORPROMAZINE [Suspect]
     Dosage: 1 DOSE DAILY
  5. CHLORPROMAZINE [Suspect]
     Indication: SCHIZOPHRENIA
     Dosage: 1 DOSE DAILY
  6. PROMETHAZINE [Suspect]
     Dosage: 1 DOSE DAILY
  7. PROMETHAZINE [Suspect]
     Dosage: 1 DOSE DAILY
  8. PROMETHAZINE [Suspect]
     Indication: SCHIZOPHRENIA
     Dosage: 1 DOSE DAILY

REACTIONS (2)
  - ANAEMIA MEGALOBLASTIC [None]
  - ANAEMIA VITAMIN B12 DEFICIENCY [None]
